FAERS Safety Report 9619381 (Version 1)
Quarter: 2013Q4

REPORT INFORMATION
  Report Type: Spontaneous
  Country: US (occurrence: US)
  Receive Date: 20131014
  Receipt Date: 20131014
  Transmission Date: 20140711
  Serious: No
  Sender: FDA-Public Use
  Company Number: US-PFIZER INC-2013291781

PATIENT
  Age: 47 Year
  Sex: Female

DRUGS (8)
  1. ACCUPRIL [Suspect]
     Dosage: UNK
  2. GABAPENTIN [Suspect]
     Dosage: UNK
  3. LIPITOR [Suspect]
     Dosage: UNK
  4. LISINOPRIL [Suspect]
     Dosage: UNK
  5. PRAVASTATIN SODIUM [Suspect]
     Dosage: UNK
  6. ROSUVASTATIN CALCIUM [Suspect]
     Dosage: UNK
  7. DEXTRAN [Suspect]
     Dosage: UNK
  8. IRON [Suspect]
     Dosage: UNK

REACTIONS (1)
  - Drug hypersensitivity [Unknown]
